FAERS Safety Report 22265582 (Version 1)
Quarter: 2023Q2

REPORT INFORMATION
  Report Type: Spontaneous
  Country: US (occurrence: None)
  Receive Date: 20230426
  Receipt Date: 20230426
  Transmission Date: 20230722
  Serious: No
  Sender: FDA-Public Use
  Company Number: None

PATIENT
  Age: 46 Year
  Sex: Female

DRUGS (1)
  1. TUBERSOL [Suspect]
     Active Substance: TUBERCULIN PURIFIED PROTEIN DERIVATIVE

REACTIONS (5)
  - Malaise [None]
  - Bone pain [None]
  - Neck pain [None]
  - Pyrexia [None]
  - Lymph node pain [None]

NARRATIVE: CASE EVENT DATE: 20230323
